FAERS Safety Report 5942232-7 (Version None)
Quarter: 2008Q4

REPORT INFORMATION
  Report Type: 
  Country: None (occurrence: None)
  Receive Date: 20081031
  Receipt Date: 20081023
  Transmission Date: 20090506
  Serious: Yes (Hospitalization)
  Sender: FDA-Public Use
  Company Number: 2008SP021741

PATIENT
  Age: 61 Year
  Sex: Male
  Weight: 87.5 kg

DRUGS (2)
  1. TEMODAR [Suspect]
     Indication: GLIOBLASTOMA MULTIFORME
     Dosage: 310 MG; ; PO, ; PO
     Route: 048
     Dates: start: 20070917, end: 20071007
  2. TEMODAR [Suspect]
     Indication: GLIOBLASTOMA MULTIFORME
     Dosage: 310 MG; ; PO, ; PO
     Route: 048
     Dates: start: 20070618

REACTIONS (1)
  - PNEUMONIA [None]
